FAERS Safety Report 16822758 (Version 3)
Quarter: 2019Q3

REPORT INFORMATION
  Report Type: Spontaneous
  Country: US (occurrence: US)
  Receive Date: 20190918
  Receipt Date: 20190929
  Transmission Date: 20191005
  Serious: Yes (Other)
  Sender: FDA-Public Use
  Company Number: US-ALEXION PHARMACEUTICALS INC.-A201914275

PATIENT
  Sex: Female

DRUGS (1)
  1. SOLIRIS [Suspect]
     Active Substance: ECULIZUMAB
     Indication: PRODUCT USED FOR UNKNOWN INDICATION
     Route: 065

REACTIONS (19)
  - Escherichia test positive [Unknown]
  - Haemodialysis [Not Recovered/Not Resolved]
  - Haemoglobin decreased [Unknown]
  - Blood creatinine increased [Unknown]
  - Oedema [Unknown]
  - ADAMTS13 activity decreased [Unknown]
  - Blood lactate dehydrogenase increased [Unknown]
  - Protein urine present [Unknown]
  - Renal failure [Unknown]
  - Antibody test negative [Unknown]
  - Packed red blood cell transfusion [Unknown]
  - Glomerular filtration rate decreased [Unknown]
  - Mental status changes [Unknown]
  - Colitis [Unknown]
  - Red blood cells urine positive [Unknown]
  - Renal replacement therapy [Recovered/Resolved]
  - Lung assist device therapy [Recovered/Resolved]
  - Diarrhoea [Unknown]
  - Platelet count decreased [Unknown]

NARRATIVE: CASE EVENT DATE: 20190718
